FAERS Safety Report 24426002 (Version 1)
Quarter: 2024Q4

REPORT INFORMATION
  Report Type: Spontaneous
  Country: US (occurrence: US)
  Receive Date: 20241011
  Receipt Date: 20241011
  Transmission Date: 20250115
  Serious: Yes (Death, Hospitalization)
  Sender: APOTEX
  Company Number: US-APOTEX-2024AP011739

PATIENT
  Age: 41 Year
  Sex: Male

DRUGS (1)
  1. ACYCLOVIR [Suspect]
     Active Substance: ACYCLOVIR
     Indication: Herpes simplex pneumonia
     Dosage: UNK
     Route: 065

REACTIONS (1)
  - Treatment failure [Fatal]
